FAERS Safety Report 7787274-4 (Version None)
Quarter: 2011Q3

REPORT INFORMATION
  Report Type: 
  Country: None (occurrence: None)
  Receive Date: 20110929
  Receipt Date: 20110920
  Transmission Date: 20111222
  Serious: Yes (Hospitalization, Other)
  Sender: FDA-Public Use
  Company Number: JP-CELGENEUS-087-21880-10122450

PATIENT
  Sex: Female
  Weight: 33.1 kg

DRUGS (21)
  1. REVLIMID [Suspect]
     Dosage: 15 MILLIGRAM
     Route: 048
     Dates: start: 20101008, end: 20101028
  2. REVLIMID [Suspect]
     Dosage: 20 MILLIGRAM
     Route: 048
     Dates: start: 20101216, end: 20110105
  3. VALGANCICLOVIR [Concomitant]
     Indication: MULTIPLE MYELOMA
     Dosage: 450 MILLIGRAM
     Route: 048
     Dates: start: 20101114, end: 20101222
  4. REVLIMID [Suspect]
     Dosage: 15 MILLIGRAM
     Route: 048
     Dates: start: 20101105, end: 20101125
  5. PREDNISOLONE [Concomitant]
     Indication: OBLITERATIVE BRONCHIOLITIS
     Dosage: 48 MILLIGRAM
     Route: 048
  6. DEXAMETHASONE [Suspect]
     Indication: MULTIPLE MYELOMA
     Dosage: 20 MILLIGRAM
     Route: 048
     Dates: start: 20100902, end: 20100909
  7. PROGRAF [Concomitant]
     Indication: OBLITERATIVE BRONCHIOLITIS
     Dosage: 1 MILLIGRAM
     Route: 048
     Dates: start: 20100901
  8. PREDNISOLONE [Concomitant]
     Dosage: 10 MILLIGRAM
     Route: 065
     Dates: start: 20101216, end: 20110113
  9. LAXOBERON [Concomitant]
     Indication: PROPHYLAXIS
     Dosage: DOZENS OF DROPS
     Route: 048
  10. REVLIMID [Suspect]
     Indication: MULTIPLE MYELOMA
     Dosage: 25 MILLIGRAM
     Route: 048
     Dates: start: 20100901, end: 20100909
  11. REVLIMID [Suspect]
     Dosage: 15 MILLIGRAM
     Route: 048
     Dates: start: 20101203, end: 20101215
  12. PREDNISOLONE [Concomitant]
     Indication: MYELOMA RECURRENCE
     Dosage: 24 MILLIGRAM
     Route: 048
     Dates: start: 20101203, end: 20101215
  13. MAGNESIUM OXIDE [Concomitant]
     Indication: PROPHYLAXIS
     Dosage: 2 GRAM
     Route: 048
  14. VALTREX [Concomitant]
     Indication: PROPHYLAXIS
     Dosage: 1 TABLET
     Route: 048
  15. VFEND [Concomitant]
     Indication: PROPHYLAXIS
     Dosage: 400 MILLIGRAM
     Route: 048
     Dates: start: 20100901
  16. ACTONEL [Concomitant]
     Indication: PROPHYLAXIS
     Dosage: 1 TABLET
     Route: 048
     Dates: start: 20100901
  17. OMEPRAZOLE [Concomitant]
     Indication: PROPHYLAXIS
     Dosage: 20 MILLIGRAM
     Route: 048
     Dates: start: 20100901
  18. PURSENNID [Concomitant]
     Indication: PROPHYLAXIS
     Dosage: 3 TABLET
     Route: 048
  19. SULFAMETHOXAZOLE [Concomitant]
     Indication: PROPHYLAXIS
     Dosage: 4 TABLET
     Route: 048
     Dates: start: 20100901
  20. DEPAS [Concomitant]
     Indication: PROPHYLAXIS
     Dosage: 1 MILLIGRAM
     Route: 048
     Dates: start: 20100901
  21. PREDNISOLONE [Concomitant]
     Dosage: 5 MILLIGRAM
     Route: 048
     Dates: start: 20100901

REACTIONS (4)
  - ACUTE GRAFT VERSUS HOST DISEASE IN INTESTINE [None]
  - HERPES ZOSTER [None]
  - UPPER RESPIRATORY TRACT INFECTION [None]
  - DIARRHOEA [None]
